FAERS Safety Report 12922955 (Version 2)
Quarter: 2016Q4

REPORT INFORMATION
  Report Type: Spontaneous
  Country: US (occurrence: US)
  Receive Date: 20161108
  Receipt Date: 20161109
  Transmission Date: 20170207
  Serious: No
  Sender: FDA-Public Use
  Company Number: US-PFIZER INC-2016517187

PATIENT
  Age: 68 Year
  Sex: Male
  Weight: 81.65 kg

DRUGS (5)
  1. LYRICA [Suspect]
     Active Substance: PREGABALIN
     Indication: FIBROMYALGIA
     Dosage: 150 MG, UNK
     Dates: start: 2004
  2. SAVAYSA [Concomitant]
     Active Substance: EDOXABAN TOSYLATE
     Indication: COAGULOPATHY
     Dosage: ONE TABLET BY MOUTH DAILY
     Route: 048
  3. CELEBREX [Suspect]
     Active Substance: CELECOXIB
     Indication: ARTHRITIS
     Dosage: 200 MG ONE CAPSULE BY MOUTH ONCE A DAY
     Route: 048
  4. CELEBREX [Suspect]
     Active Substance: CELECOXIB
     Indication: INTERVERTEBRAL DISC PROTRUSION
  5. OXYCODONE [Concomitant]
     Active Substance: OXYCODONE
     Indication: PAIN
     Dosage: 30MG ONE TABLET BY MOUTH EVERY SIX HOURS
     Route: 048

REACTIONS (7)
  - Anxiety [Unknown]
  - Intentional product misuse [Unknown]
  - Burning sensation [Not Recovered/Not Resolved]
  - Activities of daily living impaired [Unknown]
  - Fall [Not Recovered/Not Resolved]
  - Intervertebral disc protrusion [Unknown]
  - Spinal disorder [Not Recovered/Not Resolved]

NARRATIVE: CASE EVENT DATE: 2004
